FAERS Safety Report 5623272-4 (Version None)
Quarter: 2008Q1

REPORT INFORMATION
  Report Type: 
  Country: None (occurrence: None)
  Receive Date: 20080207
  Receipt Date: 20080130
  Transmission Date: 20080703
  Serious: Yes (Life-Threatening)
  Sender: FDA-Public Use
  Company Number: 2008SP000500

PATIENT
  Age: 54 Year
  Sex: Male
  Weight: 85.2762 kg

DRUGS (2)
  1. PEG-INTRON [Suspect]
     Indication: HEPATITIS C
     Dosage: 120 MCG;QW;SC
     Route: 058
     Dates: start: 20071001, end: 20080101
  2. RIBAVIRIN [Suspect]
     Indication: HEPATITIS C
     Dosage: 600 MG;BID;PO
     Route: 048
     Dates: start: 20071001, end: 20080101

REACTIONS (12)
  - AGGRESSION [None]
  - ANGER [None]
  - BASILAR ARTERY OCCLUSION [None]
  - CAROTID ARTERY OCCLUSION [None]
  - CONFUSIONAL STATE [None]
  - DIZZINESS [None]
  - FEELING ABNORMAL [None]
  - HYPERAESTHESIA [None]
  - NAUSEA [None]
  - PAIN [None]
  - PYREXIA [None]
  - VERTEBRAL ARTERY OCCLUSION [None]
